FAERS Safety Report 6145509-8 (Version None)
Quarter: 2009Q2

REPORT INFORMATION
  Report Type: 
  Country: None (occurrence: None)
  Receive Date: 20090406
  Receipt Date: 20090325
  Transmission Date: 20091009
  Serious: Yes (Other)
  Sender: FDA-Public Use
  Company Number: DE-PFIZER INC-2008098558

PATIENT

DRUGS (5)
  1. LYRICA [Suspect]
     Indication: FACIAL PAIN
     Dosage: 75 MG, 2X/DAY
     Route: 048
     Dates: start: 20080303
  2. LYRICA [Suspect]
     Dosage: 150 MG, 3X/DAY
     Route: 048
     Dates: start: 20080303
  3. CLONID-OPHTAL [Concomitant]
     Route: 047
  4. PILOMANN [Concomitant]
     Route: 047
  5. TRAVATAN [Concomitant]
     Route: 047

REACTIONS (5)
  - BLOOD PRESSURE INCREASED [None]
  - DRUG WITHDRAWAL SYNDROME [None]
  - DYSPNOEA [None]
  - EYE DISORDER [None]
  - MACULAR DEGENERATION [None]
